FAERS Safety Report 11061320 (Version 1)
Quarter: 2015Q2

REPORT INFORMATION
  Report Type: Spontaneous
  Country: US (occurrence: None)
  Receive Date: 20150423
  Receipt Date: 20150423
  Transmission Date: 20150821
  Serious: Yes (Other)
  Sender: FDA-Public Use
  Company Number: None

PATIENT
  Age: 48 Year
  Sex: Female
  Weight: 102.06 kg

DRUGS (11)
  1. CYCLOBENZAPINE [Concomitant]
  2. MAGNESIUM POWDER [Concomitant]
  3. IBUPROPHEN [Concomitant]
     Active Substance: IBUPROFEN
  4. ADDERALL [Concomitant]
     Active Substance: AMPHETAMINE ASPARTATE\AMPHETAMINE SULFATE\DEXTROAMPHETAMINE SACCHARATE\DEXTROAMPHETAMINE SULFATE
  5. COPAXONE [Suspect]
     Active Substance: GLATIRAMER ACETATE
     Indication: MULTIPLE SCLEROSIS
     Route: 058
     Dates: start: 20150408, end: 20150419
  6. FLOVENT [Concomitant]
     Active Substance: FLUTICASONE PROPIONATE
  7. ALBUTEROL. [Concomitant]
     Active Substance: ALBUTEROL
  8. CARBEMAZEPINE [Concomitant]
     Active Substance: CARBAMAZEPINE
  9. GENERIC CLARITIN [Concomitant]
  10. PRILOSEC [Concomitant]
     Active Substance: OMEPRAZOLE MAGNESIUM
  11. MULTIVITAMIN [Concomitant]
     Active Substance: VITAMINS

REACTIONS (5)
  - Flushing [None]
  - Dyspnoea [None]
  - Blood pressure increased [None]
  - Palpitations [None]
  - Presyncope [None]

NARRATIVE: CASE EVENT DATE: 20150419
